FAERS Safety Report 12935074 (Version 2)
Quarter: 2017Q1

REPORT INFORMATION
  Report Type: Spontaneous
  Country: US (occurrence: US)
  Receive Date: 20161113
  Receipt Date: 20170224
  Transmission Date: 20170428
  Serious: No
  Sender: FDA-Public Use
  Company Number: US-TAIHO ONCOLOGY INC-EU-2016-02905

PATIENT
  Sex: Female

DRUGS (8)
  1. GLUTATHIONE [Concomitant]
     Active Substance: GLUTATHIONE
     Dates: start: 201609
  2. LONSURF [Suspect]
     Active Substance: TIPIRACIL HYDROCHLORIDE\TRIFLURIDINE
     Indication: COLON CANCER
     Route: 048
     Dates: start: 20160108, end: 2016
  3. ACETYLSALICYLIC ACID [Concomitant]
     Active Substance: ASPIRIN
     Dates: start: 201609
  4. CHLORELLA VULGARIS [Concomitant]
     Active Substance: CHLORELLA VULGARIS
     Dates: start: 201609
  5. VITIS VINIFERA SEED [Concomitant]
     Dates: start: 201609
  6. CURCUMA LONGA RHIZOME [Concomitant]
     Dates: start: 201609
  7. AVASTIN [Concomitant]
     Active Substance: BEVACIZUMAB
     Dosage: NI
  8. COLECALCIFEROL [Concomitant]
     Active Substance: CHOLECALCIFEROL
     Dosage: NI

REACTIONS (3)
  - Blood count abnormal [Not Recovered/Not Resolved]
  - Alopecia [Not Recovered/Not Resolved]
  - Fatigue [Not Recovered/Not Resolved]

NARRATIVE: CASE EVENT DATE: 2016
